FAERS Safety Report 19011537 (Version 3)
Quarter: 2021Q2

REPORT INFORMATION
  Report Type: Spontaneous
  Country: MK (occurrence: MK)
  Receive Date: 20210316
  Receipt Date: 20210409
  Transmission Date: 20210717
  Serious: Yes (Hospitalization)
  Sender: FDA-Public Use
  Company Number: MK-JNJFOC-20210327128

PATIENT
  Age: 62 Year
  Sex: Male

DRUGS (15)
  1. XARELTO [Suspect]
     Active Substance: RIVAROXABAN
     Dosage: XARELTO 20 MG?20 MG, QD
     Route: 048
     Dates: start: 20201203
  2. LASIX [Concomitant]
     Active Substance: FUROSEMIDE
     Dosage: 40
  3. URBASON [METHYLPREDNISOLONE] [Concomitant]
     Active Substance: METHYLPREDNISOLONE
     Dosage: 40
     Route: 042
  4. LINEX FORTE [Concomitant]
     Active Substance: PROBIOTICS NOS
  5. ASCORBIC ACID. [Concomitant]
     Active Substance: ASCORBIC ACID
     Dosage: 1000 MG, QD
  6. FUROSEMID [FUROSEMIDE] [Concomitant]
     Active Substance: FUROSEMIDE
     Dosage: 40 MG, QD
  7. SUMAMED [Concomitant]
     Active Substance: AZITHROMYCIN ANHYDROUS
     Dosage: 500 MG, QD
  8. VITAMIN D3 [Concomitant]
     Active Substance: CHOLECALCIFEROL
     Dosage: 2000 U, BID
  9. XARELTO [Suspect]
     Active Substance: RIVAROXABAN
     Indication: THROMBOSIS PROPHYLAXIS
     Dosage: 15 MG, QD?XARELTO 15 MG
     Route: 048
     Dates: start: 20201125, end: 20201127
  10. PANCEF [CEFUROXIME SODIUM] [Concomitant]
     Active Substance: CEFUROXIME SODIUM
     Dosage: 400 MG, QD
  11. CLEXANE [Concomitant]
     Active Substance: ENOXAPARIN SODIUM
  12. BLOOD [Concomitant]
     Active Substance: WHOLE BLOOD
  13. XARELTO [Suspect]
     Active Substance: RIVAROXABAN
     Dosage: DAILY DOSE 5 MG?XARELTO
     Route: 048
     Dates: start: 20201127, end: 20201203
  14. URBASON [METHYLPREDNISOLONE] [Concomitant]
     Active Substance: METHYLPREDNISOLONE
     Dosage: 80
     Route: 042
  15. SODIUM CHLORIDE. [Concomitant]
     Active Substance: SODIUM CHLORIDE
     Dosage: 250 ML

REACTIONS (6)
  - Haematuria [Recovered/Resolved]
  - Dyspnoea exertional [Unknown]
  - Fatigue [Unknown]
  - Oedema peripheral [Unknown]
  - Pulmonary embolism [Unknown]
  - Pain [Unknown]

NARRATIVE: CASE EVENT DATE: 2020
